FAERS Safety Report 9500885 (Version 2)
Quarter: 2013Q4

REPORT INFORMATION
  Report Type: Spontaneous
  Country: IT (occurrence: IT)
  Receive Date: 20130905
  Receipt Date: 20131003
  Transmission Date: 20140711
  Serious: No
  Sender: FDA-Public Use
  Company Number: IT-EISAI INC-E7389-04163-SPO-IT

PATIENT
  Age: 67 Year
  Sex: Female
  Weight: 70 kg

DRUGS (2)
  1. HALAVEN [Suspect]
     Indication: BREAST CANCER
     Route: 041
     Dates: start: 20130403, end: 20130403
  2. HALAVEN [Suspect]
     Dosage: UNKNOWN
     Route: 041

REACTIONS (2)
  - Pyrexia [Recovered/Resolved]
  - Cough [Recovered/Resolved]
